FAERS Safety Report 4437948-8 (Version None)
Quarter: 2004Q3

REPORT INFORMATION
  Report Type: 
  Country: None (occurrence: None)
  Receive Date: 20040831
  Receipt Date: 20040830
  Transmission Date: 20050211
  Serious: Yes (Hospitalization)
  Sender: FDA-Public Use
  Company Number: US-GLAXOSMITHKLINE-A0523778A

PATIENT
  Age: 47 Year
  Sex: Male

DRUGS (3)
  1. THORAZINE [Suspect]
     Indication: ILL-DEFINED DISORDER
     Dosage: 75MG TWICE PER DAY
     Route: 048
     Dates: start: 20040829, end: 20040830
  2. ARICEPT [Concomitant]
  3. MULTIPLE CONCURRENT [Concomitant]

REACTIONS (4)
  - CONFUSIONAL STATE [None]
  - DRUG INEFFECTIVE [None]
  - MEDICATION ERROR [None]
  - MENTAL DISORDER [None]
